FAERS Safety Report 23442404 (Version 1)
Quarter: 2024Q1

REPORT INFORMATION
  Report Type: Other
  Country: None (occurrence: US)
  Receive Date: 20240125
  Receipt Date: 20240125
  Transmission Date: 20240410
  Serious: No
  Sender: FDA-Public Use
  Company Number: US-SIGA Technologies, Inc.-2152001

PATIENT
  Age: 10 Day
  Sex: Female

DRUGS (6)
  1. TPOXX [Suspect]
     Active Substance: TECOVIRIMAT
     Indication: Monkeypox
     Route: 048
  2. ampicillin, [Concomitant]
  3. GENTAMICIN [Concomitant]
     Active Substance: GENTAMICIN
  4. ACYCLOVIR [Concomitant]
     Active Substance: ACYCLOVIR
  5. MOXIFLOXACIN [Concomitant]
     Active Substance: MOXIFLOXACIN
     Route: 047
  6. ERYTHROMYCIN [Concomitant]
     Active Substance: ERYTHROMYCIN
     Route: 047

REACTIONS (1)
  - Transaminases increased [Recovering/Resolving]
